FAERS Safety Report 15993960 (Version 1)
Quarter: 2019Q1

REPORT INFORMATION
  Report Type: Spontaneous
  Country: AU (occurrence: AU)
  Receive Date: 20190222
  Receipt Date: 20190222
  Transmission Date: 20190418
  Serious: Yes (Other)
  Sender: FDA-Public Use
  Company Number: AU-SA-2019SA015036

PATIENT
  Sex: Male

DRUGS (47)
  1. ALU-TAB [ALUMINIUM HYDROXIDE GEL, DRIED] [Concomitant]
     Dosage: 1 DF, TID
     Route: 048
  2. ASPIRIN [ACETYLSALICYLIC ACID] [Concomitant]
     Active Substance: ASPIRIN
     Dosage: 1 DF, QD
     Route: 048
  3. OTOCOMB OTIC [Concomitant]
     Dosage: UNK UNK, PRN
     Route: 001
  4. SIFROL ER [Concomitant]
     Active Substance: PRAMIPEXOLE
     Dosage: 1-2 MANE
     Route: 048
  5. VOLTARENE (DICLOFENAC SODIUM) [Concomitant]
     Active Substance: DICLOFENAC SODIUM
     Dosage: 1 DF, PRN
  6. WARFARIN SODIUM. [Concomitant]
     Active Substance: WARFARIN SODIUM
     Dosage: 4 MG
     Route: 048
  7. AMITRIPTILINA [AMITRIPTYLINE] [Concomitant]
  8. RENAGEL [Suspect]
     Active Substance: SEVELAMER HYDROCHLORIDE
     Dosage: 2.4 G, QD
  9. TRAJENTA [Concomitant]
     Active Substance: LINAGLIPTIN
     Dosage: 1 DF, QD
     Route: 048
  10. METOCLOPRAMIDE. [Concomitant]
     Active Substance: METOCLOPRAMIDE
  11. TEGRETOL [Concomitant]
     Active Substance: CARBAMAZEPINE
  12. COUMADIN [Concomitant]
     Active Substance: WARFARIN SODIUM
     Dosage: 4 UNK
  13. FUROSEMIDE. [Concomitant]
     Active Substance: FUROSEMIDE
     Dosage: 1 DF, TID
     Route: 048
  14. HUMALOG [Concomitant]
     Active Substance: INSULIN LISPRO
     Dosage: 24 UNIT
     Route: 058
  15. HYDROCHLOROTHIAZIDE. [Concomitant]
     Active Substance: HYDROCHLOROTHIAZIDE
     Dosage: 1 DF
     Route: 048
  16. SIGMACORT [HYDROCORTISONE ACETATE] [Concomitant]
     Dosage: TO INFLAME FISTULA SITE
     Route: 061
  17. SERTRALINE [Concomitant]
     Active Substance: SERTRALINE HYDROCHLORIDE
  18. COUMADIN [Concomitant]
     Active Substance: WARFARIN SODIUM
     Dosage: 2 MG, QD
  19. COLOXYL C SENNA [Concomitant]
     Active Substance: DOCUSATE SODIUM\SENNOSIDES A AND B
     Dosage: 50 MG 11.27M 3 NOCTE G (EQUIVALENT TO SENNOSIDE B 8 MG 50%50%
     Route: 048
  20. DULOXETINE. [Concomitant]
     Active Substance: DULOXETINE
  21. TRAMADOL. [Concomitant]
     Active Substance: TRAMADOL
  22. ATORVASTATIN [Concomitant]
     Active Substance: ATORVASTATIN
     Dosage: 1 DF, QD
     Route: 048
  23. ELEUPHRAT [Concomitant]
     Active Substance: BETAMETHASONE DIPROPIONATE
     Dosage: UNK UNK, QD
     Route: 061
  24. LANTUS [Concomitant]
     Active Substance: INSULIN GLARGINE
     Dosage: 120 U/S MANE AND 8 U/S NOCTE
     Route: 058
  25. PANADOL [Concomitant]
     Active Substance: ACETAMINOPHEN
     Dosage: 2 DF, PRN
     Route: 048
  26. LYRICA [Concomitant]
     Active Substance: PREGABALIN
  27. EFEXOR [Concomitant]
     Active Substance: VENLAFAXINE HYDROCHLORIDE
     Dosage: 1 DF
     Route: 048
  28. ELOCON [Concomitant]
     Active Substance: MOMETASONE FUROATE
  29. FLUVAX [Concomitant]
     Active Substance: INFLUENZA VIRUS VACCINE
  30. SIFROL [Concomitant]
     Active Substance: PRAMIPEXOLE
     Dosage: 1 DF
     Route: 048
  31. WARFARIN SODIUM. [Concomitant]
     Active Substance: WARFARIN SODIUM
     Dosage: 2 MG
     Route: 048
  32. NEURONTIN [Concomitant]
     Active Substance: GABAPENTIN
  33. NORSPAN [NORFLOXACIN] [Concomitant]
     Active Substance: NORFLOXACIN
  34. FOSRENOL [Concomitant]
     Active Substance: LANTHANUM CARBONATE
     Indication: BLOOD PHOSPHORUS
     Dosage: 1000 MG, TID
  35. DIPROSONE [Concomitant]
     Active Substance: BETAMETHASONE DIPROPIONATE
     Dosage: UNK UNK, QD
     Route: 061
  36. DYMISTA [Concomitant]
     Active Substance: AZELASTINE HYDROCHLORIDE\FLUTICASONE PROPIONATE
     Dosage: 125 UG 2 PUFF
     Route: 045
  37. MAGNESIUM ASPARTATE DIHYDRATE [Concomitant]
     Dosage: 1 DF, TID
     Route: 048
  38. OSTEVIT-D [Concomitant]
     Dosage: 1 DF, QD
     Route: 048
  39. SLOW-K [Concomitant]
     Active Substance: POTASSIUM CHLORIDE
     Dosage: 1 DF, QD
     Route: 048
  40. BLACKMORES VITAMIN C [Concomitant]
  41. ENDEP [Concomitant]
     Active Substance: AMITRIPTYLINE HYDROCHLORIDE
  42. TOPIRAMATE. [Concomitant]
     Active Substance: TOPIRAMATE
  43. DERMEZE [Concomitant]
     Active Substance: MINERAL OIL\PETROLATUM
     Dosage: 50%50%
     Route: 061
  44. SAW PALMETTO [SERENOA REPENS FRUIT] [Concomitant]
     Dosage: 1 DF
     Route: 048
  45. SOTALOL HYDROCHLORIDE. [Concomitant]
     Active Substance: SOTALOL HYDROCHLORIDE
     Dosage: 1/4, QD
     Route: 048
  46. VITAMIN C [Concomitant]
     Active Substance: ASCORBIC ACID
     Dosage: 1 DF
     Route: 048
  47. BACLOFEN. [Concomitant]
     Active Substance: BACLOFEN

REACTIONS (1)
  - International normalised ratio fluctuation [Not Recovered/Not Resolved]
